FAERS Safety Report 8970140 (Version 1)
Quarter: 2012Q4

REPORT INFORMATION
  Report Type: 
  Country: US (occurrence: US)
  Receive Date: 20121217
  Receipt Date: 20121217
  Transmission Date: 20130627
  Serious: No
  Sender: FDA-Public Use
  Company Number: US-PFIZER INC-2012318560

PATIENT
  Age: 44 Year
  Sex: Female
  Weight: 57.14 kg

DRUGS (1)
  1. LYRICA [Suspect]
     Indication: FIBROMYALGIA
     Dosage: 300 mg, 2x/day

REACTIONS (1)
  - Drug ineffective [Unknown]
